FAERS Safety Report 24049316 (Version 1)
Quarter: 2024Q3

REPORT INFORMATION
  Report Type: Spontaneous
  Country: ID (occurrence: ID)
  Receive Date: 20240704
  Receipt Date: 20240704
  Transmission Date: 20241017
  Serious: Yes (Death, Other)
  Sender: GLAXOSMITHKLINE
  Company Number: ID-GLAXOSMITHKLINE-ID2024APC081510

PATIENT

DRUGS (1)
  1. TRELEGY ELLIPTA [Suspect]
     Active Substance: FLUTICASONE FUROATE\UMECLIDINIUM BROMIDE\VILANTEROL TRIFENATATE
     Indication: Product used for unknown indication
     Dosage: UNK

REACTIONS (1)
  - Lung neoplasm malignant [Fatal]
